FAERS Safety Report 9815978 (Version 1)
Quarter: 2014Q1

REPORT INFORMATION
  Report Type: Spontaneous
  Country: US (occurrence: US)
  Receive Date: 20140114
  Receipt Date: 20140114
  Transmission Date: 20141002
  Serious: No
  Sender: FDA-Public Use
  Company Number: US-009507513-1401USA003983

PATIENT
  Sex: Female

DRUGS (7)
  1. NASONEX [Suspect]
     Indication: HYPERSENSITIVITY
     Dosage: UNK
     Route: 055
  2. PROVENTIL [Concomitant]
  3. ADVAIR [Concomitant]
  4. ACCOLATE [Concomitant]
  5. ALLEGRA [Concomitant]
  6. LIDODERM [Concomitant]
  7. HYDROCODONE [Concomitant]

REACTIONS (3)
  - Upper-airway cough syndrome [Unknown]
  - Drug dose omission [Unknown]
  - Sneezing [Unknown]
